FAERS Safety Report 7166134-6 (Version None)
Quarter: 2010Q4

REPORT INFORMATION
  Report Type: 
  Country: None (occurrence: None)
  Receive Date: 20101216
  Receipt Date: 20101202
  Transmission Date: 20110411
  Serious: Yes (Hospitalization, Other)
  Sender: FDA-Public Use
  Company Number: PT-JNJFOC-20090201529

PATIENT
  Sex: Female

DRUGS (11)
  1. REMICADE [Suspect]
     Indication: CROHN'S DISEASE
     Dosage: ON DEMAND
     Route: 042
  2. REMICADE [Suspect]
     Route: 042
  3. REMICADE [Suspect]
     Route: 042
  4. REMICADE [Suspect]
     Route: 042
  5. REMICADE [Suspect]
     Route: 042
  6. REMICADE [Suspect]
     Route: 042
  7. REMICADE [Suspect]
     Route: 042
  8. PREDNISOLONE [Suspect]
     Indication: CROHN'S DISEASE
  9. ADALIMUMAB [Concomitant]
     Dosage: WEEK 0
  10. ADALIMUMAB [Concomitant]
  11. PREDNISONE [Concomitant]
     Indication: PREMEDICATION
     Dosage: ON THE 2 DAYS PRIOR TO INFUSION

REACTIONS (10)
  - AUTOIMMUNE HEPATITIS [None]
  - CATARACT [None]
  - CROHN'S DISEASE [None]
  - DERMOID CYST [None]
  - DRUG EXPOSURE BEFORE PREGNANCY [None]
  - DRUG INEFFECTIVE [None]
  - INTERVERTEBRAL DISC PROTRUSION [None]
  - OSTEOPOROSIS [None]
  - RETINAL DETACHMENT [None]
  - SERUM SICKNESS [None]
